FAERS Safety Report 16971509 (Version 1)
Quarter: 2019Q4

REPORT INFORMATION
  Report Type: Spontaneous
  Country: JP (occurrence: JP)
  Receive Date: 20191029
  Receipt Date: 20191029
  Transmission Date: 20200122
  Serious: Yes (Other)
  Sender: FDA-Public Use
  Company Number: NVSC2019JP010159

PATIENT
  Age: 48 Year
  Sex: Female

DRUGS (4)
  1. CAPECITABINE. [Suspect]
     Active Substance: CAPECITABINE
     Indication: GASTRIC CANCER
     Dosage: 1000 MG/M2, CYCLIC (PER 12 HR DAYS 1-14, 3 WEEKS PER CYCLE)
     Route: 065
  2. OXALIPLATIN. [Suspect]
     Active Substance: OXALIPLATIN
     Indication: GASTRIC CANCER
     Dosage: 130 MG/M2, CYCLIC (DAY 1, 3 WEEKS PER CYCLE)
     Route: 065
  3. OXALIPLATIN. [Suspect]
     Active Substance: OXALIPLATIN
     Indication: METASTASES TO PERITONEUM
  4. CAPECITABINE. [Suspect]
     Active Substance: CAPECITABINE
     Indication: METASTASES TO PERITONEUM

REACTIONS (5)
  - Blood pressure decreased [Unknown]
  - Vomiting [Unknown]
  - Wheezing [Unknown]
  - Product use in unapproved indication [Unknown]
  - Shock [Unknown]
